FAERS Safety Report 8937200 (Version 1)
Quarter: 2012Q4

REPORT INFORMATION
  Report Type: Spontaneous
  Country: US (occurrence: None)
  Receive Date: 20121128
  Receipt Date: 20121128
  Transmission Date: 20130627
  Serious: Yes (Hospitalization)
  Sender: FDA-Public Use
  Company Number: None

PATIENT
  Age: 79 Year
  Sex: Male
  Weight: 83.9 kg

DRUGS (12)
  1. ARIPIPRAZOLE [Suspect]
     Indication: DEPRESSION
     Dosage: 10MG  DAILY  PO
RECENT
     Route: 048
  2. EFFEXOR XR [Concomitant]
  3. ACTOS [Concomitant]
  4. ZESTORECTIC [Concomitant]
  5. DOXAZOSIN [Concomitant]
  6. WELLBUTRIN SR [Concomitant]
  7. ASA [Concomitant]
  8. METFORMIN [Concomitant]
  9. METOPROLOL SUCC [Concomitant]
  10. LIPITOR [Concomitant]
  11. PLAVIX [Concomitant]
  12. PROTONIX [Concomitant]

REACTIONS (1)
  - Mental status changes [None]
